FAERS Safety Report 14863945 (Version 1)
Quarter: 2018Q2

REPORT INFORMATION
  Report Type: Report from Study
  Country: GB (occurrence: GB)
  Receive Date: 20180508
  Receipt Date: 20180508
  Transmission Date: 20180711
  Serious: Yes (Other)
  Sender: FDA-Public Use
  Company Number: GB-AMGEN-GBRNI2018061131

PATIENT
  Age: 47 Year
  Sex: Male
  Weight: 88 kg

DRUGS (3)
  1. SULFASALAZINE. [Concomitant]
     Active Substance: SULFASALAZINE
     Indication: ANKYLOSING SPONDYLITIS
     Dosage: UNK
  2. MYCOPHENOLATE MOFETIL. [Concomitant]
     Active Substance: MYCOPHENOLATE MOFETIL
     Indication: ANKYLOSING SPONDYLITIS
     Dosage: UNK
  3. ETANERCEPT [Suspect]
     Active Substance: ETANERCEPT
     Indication: ANKYLOSING SPONDYLITIS
     Dosage: 25 MG, UNK
     Route: 058
     Dates: start: 20041213, end: 20081114

REACTIONS (1)
  - Nodular melanoma [Not Recovered/Not Resolved]

NARRATIVE: CASE EVENT DATE: 20170206
